FAERS Safety Report 21305313 (Version 1)
Quarter: 2022Q3

REPORT INFORMATION
  Report Type: Other
  Country: IN (occurrence: None)
  Receive Date: 20220907
  Receipt Date: 20220907
  Transmission Date: 20221026
  Serious: Yes (Hospitalization, Other)
  Sender: FDA-Public Use
  Company Number: IN-ROCHE-3174852

PATIENT
  Age: 27 Year
  Sex: Female

DRUGS (9)
  1. MYCOPHENOLATE MOFETIL [Suspect]
     Active Substance: MYCOPHENOLATE MOFETIL
     Indication: Behcet^s syndrome
     Route: 048
  2. PREDNISOLONE [Suspect]
     Active Substance: PREDNISOLONE
     Indication: Behcet^s syndrome
     Route: 048
  3. CYCLOSPORINE [Suspect]
     Active Substance: CYCLOSPORINE
     Indication: Behcet^s syndrome
     Route: 048
  4. ADALIMUMAB [Suspect]
     Active Substance: ADALIMUMAB
     Indication: Behcet^s syndrome
     Dosage: 6 DOSES
     Route: 058
  5. ATORVASTATIN [Concomitant]
     Active Substance: ATORVASTATIN
  6. RIVAROXABAN [Concomitant]
     Active Substance: RIVAROXABAN
  7. ASPIRIN [Concomitant]
     Active Substance: ASPIRIN
  8. PIPERACILLIN [Concomitant]
     Active Substance: PIPERACILLIN
  9. CLINDAMYCIN [Concomitant]
     Active Substance: CLINDAMYCIN

REACTIONS (4)
  - Off label use [Unknown]
  - Pneumonia pseudomonal [Unknown]
  - Pneumonia klebsiella [Unknown]
  - Tuberculosis [Unknown]
